FAERS Safety Report 5141079-1 (Version None)
Quarter: 2006Q4

REPORT INFORMATION
  Report Type: 
  Country: None (occurrence: None)
  Receive Date: 20061026
  Receipt Date: 20061012
  Transmission Date: 20070319
  Serious: Yes (Hospitalization)
  Sender: FDA-Public Use
  Company Number: 2006060205

PATIENT
  Age: 56 Year
  Sex: Female

DRUGS (10)
  1. SILDENAFIL (PAH) (SILDENAFIL) [Suspect]
     Indication: PULMONARY HYPERTENSION
     Dosage: 240 MG (80 MG, 3 IN 1 D), ORAL
     Route: 048
     Dates: start: 20060101
  2. EPOPROSTENOL SODIUM [Suspect]
     Indication: CONNECTIVE TISSUE DISORDER
     Dosage: UNIT DOSE 8.2MG/KG/MIN, INTRAVENOUS
     Route: 042
     Dates: start: 20050516
  3. EPOPROSTENOL SODIUM [Suspect]
     Indication: PULMONARY HYPERTENSION
     Dosage: UNIT DOSE 8.2MG/KG/MIN, INTRAVENOUS
     Route: 042
     Dates: start: 20050516
  4. FUROSEMIDE [Concomitant]
  5. SPIRONOLACTONE [Concomitant]
  6. WARFARIN SODIUM [Concomitant]
  7. ACETAMINOPHEN [Concomitant]
  8. DIHYROCODEINE (DIHYROCODEINE) [Concomitant]
  9. LANSOPRAZOLE [Concomitant]
  10. CITALOPRAM HYDROBROMIDE [Concomitant]

REACTIONS (2)
  - GASTRIC ULCER HAEMORRHAGE [None]
  - MELAENA [None]
